FAERS Safety Report 23919904 (Version 2)
Quarter: 2024Q3

REPORT INFORMATION
  Report Type: Spontaneous
  Country: US (occurrence: US)
  Receive Date: 20240530
  Receipt Date: 20240703
  Transmission Date: 20241017
  Serious: Yes (Other)
  Sender: INCYTE
  Company Number: US-INCYTE CORPORATION-2024IN005680

PATIENT

DRUGS (2)
  1. JAKAFI [Suspect]
     Active Substance: RUXOLITINIB
     Indication: Polycythaemia
     Dosage: UNK
     Route: 048
  2. BESREMI [Concomitant]
     Active Substance: ROPEGINTERFERON ALFA-2B-NJFT
     Indication: Product used for unknown indication
     Dosage: 100 MICROGRAM, EVERY 14 DAYS (INCREASE DOSE 50MCG EVERY 2 WEEKS AS DIRECTED OR UNTIL MAX 500MG (AM))
     Route: 058
     Dates: start: 20240409

REACTIONS (9)
  - Renal injury [Unknown]
  - Extramedullary haemopoiesis [Unknown]
  - Haematocrit increased [Recovering/Resolving]
  - White blood cell count increased [Recovering/Resolving]
  - Arthralgia [Unknown]
  - Myalgia [Unknown]
  - Fatigue [Unknown]
  - Platelet count decreased [Unknown]
  - Anaemia [Unknown]
